FAERS Safety Report 9016033 (Version 1)
Quarter: 2013Q1

REPORT INFORMATION
  Report Type: Spontaneous
  Country: US (occurrence: US)
  Receive Date: 20130116
  Receipt Date: 20130116
  Transmission Date: 20140127
  Serious: Yes (Other)
  Sender: FDA-Public Use
  Company Number: US-009507513-1301USA003734

PATIENT
  Age: 54 Year
  Sex: Female

DRUGS (12)
  1. SINGULAIR [Suspect]
     Route: 048
  2. LEVOTHYROXINE SODIUM [Suspect]
     Route: 048
  3. PRAVASTATIN SODIUM [Suspect]
     Route: 048
  4. LANSOPRAZOLE [Suspect]
     Route: 048
  5. MEDIATOR [Suspect]
     Indication: TYPE 2 DIABETES MELLITUS
     Dosage: 300 MG, QD
     Route: 048
  6. FLUTICASONE PROPIONATE (+) SALMETEROL XINAFOATE [Suspect]
     Route: 055
  7. KREDEX [Concomitant]
     Indication: PRODUCT USED FOR UNKNOWN INDICATION
  8. ATACAND [Concomitant]
  9. DIFFU-K [Concomitant]
  10. LASIX (FUROSEMIDE SODIUM) [Concomitant]
  11. ALDACTONE INJECTION [Concomitant]
  12. NEXIUM [Concomitant]

REACTIONS (2)
  - Aortic valve incompetence [Unknown]
  - Mitral valve incompetence [Unknown]
